FAERS Safety Report 12191990 (Version 1)
Quarter: 2016Q1

REPORT INFORMATION
  Report Type: Spontaneous
  Country: HR (occurrence: HR)
  Receive Date: 20160318
  Receipt Date: 20160318
  Transmission Date: 20160526
  Serious: Yes (Other)
  Sender: FDA-Public Use
  Company Number: HR-SA-2016SA052137

PATIENT
  Age: 67 Year
  Sex: Female

DRUGS (4)
  1. NORPREXANIL [Concomitant]
     Active Substance: UNSPECIFIED INGREDIENT
     Indication: ESSENTIAL HYPERTENSION
     Route: 048
  2. TRENTAL [Suspect]
     Active Substance: PENTOXIFYLLINE
     Route: 048
     Dates: start: 20160212
  3. BELFORMIN [Concomitant]
     Indication: TYPE 2 DIABETES MELLITUS
     Route: 048
  4. ISMN [Concomitant]
     Active Substance: ISOSORBIDE MONONITRATE
     Indication: ANGINA PECTORIS
     Route: 048

REACTIONS (1)
  - Melaena [Recovered/Resolved]

NARRATIVE: CASE EVENT DATE: 20160218
